FAERS Safety Report 12328525 (Version 1)
Quarter: 2016Q2

REPORT INFORMATION
  Report Type: Spontaneous
  Country: US (occurrence: US)
  Receive Date: 20160503
  Receipt Date: 20160503
  Transmission Date: 20160815
  Serious: No
  Sender: FDA-Public Use
  Company Number: US-BEH-2015048951

PATIENT
  Sex: Female
  Weight: 48 kg

DRUGS (22)
  1. XANAX [Concomitant]
     Active Substance: ALPRAZOLAM
  2. EPIPEN [Concomitant]
     Active Substance: EPINEPHRINE
  3. RESTORIL [Concomitant]
     Active Substance: TEMAZEPAM
  4. LYRICA [Concomitant]
     Active Substance: PREGABALIN
  5. MOBIC [Concomitant]
     Active Substance: MELOXICAM
  6. FISH OIL [Concomitant]
     Active Substance: FISH OIL
  7. ADVAIR HFA [Concomitant]
     Active Substance: FLUTICASONE PROPIONATE\SALMETEROL XINAFOATE
  8. ACETAMINOPHEN. [Concomitant]
     Active Substance: ACETAMINOPHEN
  9. VENTOLIN [Concomitant]
     Active Substance: ALBUTEROL SULFATE
  10. FLAXSEED [Concomitant]
     Active Substance: FLAX SEED
  11. ALIVE VITAMIN [Concomitant]
  12. INDERAL LA [Concomitant]
     Active Substance: PROPRANOLOL HYDROCHLORIDE
  13. FENTANYL. [Concomitant]
     Active Substance: FENTANYL
  14. PREVACID [Concomitant]
     Active Substance: LANSOPRAZOLE
  15. ESTRACE [Concomitant]
     Active Substance: ESTRADIOL
  16. LIDOCAINE. [Concomitant]
     Active Substance: LIDOCAINE
  17. ZYRTEC-D ALLERGY AND CONGESTION [Concomitant]
     Active Substance: CETIRIZINE HYDROCHLORIDE\PSEUDOEPHEDRINE HYDROCHLORIDE
  18. HIZENTRA [Suspect]
     Active Substance: HUMAN IMMUNOGLOBULIN G
     Indication: IMMUNODEFICIENCY COMMON VARIABLE
     Dosage: 4 GM 20 ML VIAL
     Route: 058
  19. DIPHENHYDRAMINE. [Concomitant]
     Active Substance: DIPHENHYDRAMINE
  20. ASPIRIN. [Concomitant]
     Active Substance: ASPIRIN
  21. VITAMIN E [Concomitant]
     Active Substance: .ALPHA.-TOCOPHEROL
  22. VITAMIN D [Concomitant]
     Active Substance: CHOLECALCIFEROL

REACTIONS (7)
  - Chest discomfort [Recovered/Resolved]
  - Back pain [Unknown]
  - Chest discomfort [Unknown]
  - Headache [Unknown]
  - Back pain [Recovered/Resolved]
  - Headache [Recovered/Resolved]
  - Diarrhoea [Recovered/Resolved]
